FAERS Safety Report 22156271 (Version 1)
Quarter: 2023Q1

REPORT INFORMATION
  Report Type: Report from Study
  Country: SG (occurrence: None)
  Receive Date: 20230330
  Receipt Date: 20230330
  Transmission Date: 20230417
  Serious: Yes (Other)
  Sender: FDA-Public Use
  Company Number: 2023A068709

PATIENT
  Age: 691 Month

DRUGS (1)
  1. TAGRISSO [Suspect]
     Active Substance: OSIMERTINIB
     Indication: Non-small cell lung cancer
     Route: 048
     Dates: start: 202211

REACTIONS (2)
  - Rash [Unknown]
  - Syncope [Unknown]

NARRATIVE: CASE EVENT DATE: 20221201
